FAERS Safety Report 22069059 (Version 2)
Quarter: 2024Q1

REPORT INFORMATION
  Report Type: Spontaneous
  Country: US (occurrence: US)
  Receive Date: 20230307
  Receipt Date: 20240226
  Transmission Date: 20240410
  Serious: No
  Sender: FDA-Public Use
  Company Number: US-AMNEAL PHARMACEUTICALS-2022-AMRX-01639

PATIENT
  Age: 70 Year
  Sex: Female

DRUGS (6)
  1. RYTARY [Suspect]
     Active Substance: CARBIDOPA\LEVODOPA
     Indication: Product used for unknown indication
     Dosage: 4 CAPSULES, 3X/DAY
     Route: 048
  2. RYTARY [Suspect]
     Active Substance: CARBIDOPA\LEVODOPA
     Dosage: 4 CAPSULES AT 6AM AND 11 AM, 3 CAPSULES AT 4PM, AND 2 CAPSULES AT 9PM.
     Route: 048
  3. RYTARY [Suspect]
     Active Substance: CARBIDOPA\LEVODOPA
     Dosage: 4 CAPSULES AT 6 AM, 3 CAPSULES AT 11 AM, 3 CAPSULES AT 4PM, 2 CAPSULES AT 9PM
     Route: 048
  4. RYTARY [Suspect]
     Active Substance: CARBIDOPA\LEVODOPA
     Dosage: 4 CAPSULES BY MOUTH AT 6AM, TAKE 3 CAP AT 11AM, TAKE 4 CAPSULES BY MOUTH AT 4PM, AND TAKE 2 CAPSULES
     Route: 048
     Dates: start: 20230627
  5. RYTARY [Suspect]
     Active Substance: CARBIDOPA\LEVODOPA
     Dosage: 4 CAPSULE AT 6AM, 3 CAPS AT 11AM, 4 CAPS AT 4PM AND 1 CAPS AT 9 PM
     Route: 048
     Dates: start: 20230925, end: 202309
  6. RYTARY [Suspect]
     Active Substance: CARBIDOPA\LEVODOPA
     Dosage: 4 CAPSULES AT 6AM, 3 CAPSULES AT 11AM AND 4PM, THEN 1 CAPSULE AT 9PM.
     Route: 048
     Dates: start: 20230926

REACTIONS (2)
  - Dizziness [Recovering/Resolving]
  - COVID-19 [Recovered/Resolved]

NARRATIVE: CASE EVENT DATE: 20220525
